FAERS Safety Report 6141574-2 (Version None)
Quarter: 2009Q2

REPORT INFORMATION
  Report Type: 
  Country: None (occurrence: None)
  Receive Date: 20090402
  Receipt Date: 20090325
  Transmission Date: 20091009
  Serious: Yes (Hospitalization)
  Sender: FDA-Public Use
  Company Number: A0770340A

PATIENT
  Age: 57 Year
  Sex: Female

DRUGS (2)
  1. TYKERB [Suspect]
     Indication: DRUG USE FOR UNKNOWN INDICATION
     Route: 048
     Dates: start: 20090201
  2. XELODA [Suspect]
     Dates: start: 20090201

REACTIONS (4)
  - DEPRESSION [None]
  - FATIGUE [None]
  - NAUSEA [None]
  - PANCREATITIS [None]
